FAERS Safety Report 7539818-5 (Version None)
Quarter: 2011Q2

REPORT INFORMATION
  Report Type: 
  Country: None (occurrence: None)
  Receive Date: 20110610
  Receipt Date: 20110530
  Transmission Date: 20111010
  Serious: Yes (Other)
  Sender: FDA-Public Use
  Company Number: PHHY2011RU41555

PATIENT
  Sex: Male

DRUGS (5)
  1. EXFORGE [Suspect]
     Indication: HYPERTENSION
     Dosage: 1DF DAILY
  2. CARDIOMAGNYL [Concomitant]
     Dosage: 75 MG, DAILY
  3. PREDUCTAL [Concomitant]
     Indication: MYOCARDIAL ISCHAEMIA
     Dosage: 1 DF, BID
     Dates: start: 20101206
  4. CORINAEL [Concomitant]
     Dosage: 5 MG, BID
  5. ZOCOR [Concomitant]
     Dosage: 20 MG, DAILY

REACTIONS (3)
  - RENAL COLIC [None]
  - CALCULUS URINARY [None]
  - ABDOMINAL PAIN UPPER [None]
